FAERS Safety Report 11596054 (Version 1)
Quarter: 2015Q4

REPORT INFORMATION
  Report Type: Spontaneous
  Country: IT (occurrence: IT)
  Receive Date: 20151006
  Receipt Date: 20151006
  Transmission Date: 20160304
  Serious: Yes (Hospitalization)
  Sender: FDA-Public Use
  Company Number: IT-B. BRAUN MEDICAL INC.-1042609

PATIENT
  Age: 66 Year
  Sex: Male

DRUGS (5)
  1. NUTRILIPID I.V. FAT EMULSION [Suspect]
     Active Substance: SOYBEAN OIL
     Indication: MALNUTRITION
     Route: 042
  2. BROMHEXINE [Concomitant]
     Active Substance: BROMHEXINE
  3. HYDROCORTISONE SODIUM SUCCINATE [Concomitant]
     Active Substance: HYDROCORTISONE SODIUM SUCCINATE
     Route: 042
  4. CEFTRIAXONE. [Concomitant]
     Active Substance: CEFTRIAXONE
  5. RANITIDINE HYDROCHLORIDE. [Concomitant]
     Active Substance: RANITIDINE HYDROCHLORIDE

REACTIONS (6)
  - Diarrhoea [None]
  - Chills [None]
  - Hypotension [None]
  - Cyanosis [None]
  - Dyspnoea [None]
  - Circulatory collapse [None]
